FAERS Safety Report 4475314-X (Version None)
Quarter: 2004Q4

REPORT INFORMATION
  Report Type: 
  Country: None (occurrence: None)
  Receive Date: 20041012
  Receipt Date: 20040926
  Transmission Date: 20050328
  Serious: Yes (Hospitalization, Other)
  Sender: FDA-Public Use
  Company Number: 2004070411

PATIENT
  Sex: Male
  Weight: 76.6579 kg

DRUGS (4)
  1. NEURONTIN [Suspect]
     Indication: NEUROPATHY PERIPHERAL
     Dosage: ORAL
     Route: 048
  2. CARDURA [Suspect]
     Indication: DYSURIA
     Dosage: 2 MG (2 MG, 1 IN 1 D), ORAL
     Route: 048
  3. TRIOBE (CYANOCOBALAMIN, FOLIC ACID, PYRIDOXINE) [Concomitant]
  4. ASPIRIN [Concomitant]

REACTIONS (16)
  - ASTHENIA [None]
  - BENIGN PROSTATIC HYPERPLASIA [None]
  - CHEST DISCOMFORT [None]
  - CHILLS [None]
  - CONDITION AGGRAVATED [None]
  - CONSTIPATION [None]
  - DIARRHOEA [None]
  - DIFFICULTY IN WALKING [None]
  - DIZZINESS [None]
  - DYSURIA [None]
  - HEART RATE INCREASED [None]
  - MALAISE [None]
  - MEDICATION ERROR [None]
  - NEUROPATHY PERIPHERAL [None]
  - SOMNOLENCE [None]
  - URINARY RETENTION [None]
